FAERS Safety Report 8229806-8 (Version None)
Quarter: 2012Q1

REPORT INFORMATION
  Report Type: 
  Country: None (occurrence: None)
  Receive Date: 20120322
  Receipt Date: 20120316
  Transmission Date: 20120608
  Serious: Yes (Hospitalization)
  Sender: FDA-Public Use
  Company Number: US-ASTRAZENECA-2012SE11491

PATIENT
  Age: 74 Year
  Sex: Female
  Weight: 56.7 kg

DRUGS (3)
  1. ALBUTEROL [Concomitant]
     Indication: PULMONARY CONGESTION
  2. SYMBICORT [Suspect]
     Indication: ASTHMA
     Dosage: 1 PUFFS, TWICE DAILY
     Route: 055
  3. BLOOD PRESSURE PILL [Concomitant]
     Indication: BLOOD PRESSURE ABNORMAL

REACTIONS (2)
  - INCORRECT DOSE ADMINISTERED [None]
  - PNEUMONIA STAPHYLOCOCCAL [None]
